FAERS Safety Report 11062234 (Version 3)
Quarter: 2015Q2

REPORT INFORMATION
  Report Type: Other
  Country: IT (occurrence: IT)
  Receive Date: 20150424
  Receipt Date: 20150626
  Transmission Date: 20150821
  Serious: Yes (Other)
  Sender: FDA-Public Use
  Company Number: IT-MYLANLABS-2015M1013243

PATIENT

DRUGS (2)
  1. IBUPROFEN LYSINATE [Suspect]
     Active Substance: IBUPROFEN LYSINE
     Indication: ANTIINFLAMMATORY THERAPY
     Dosage: 1 DF, QD
     Route: 048
     Dates: start: 20150401, end: 20150401
  2. LERCANIDIPIN SANDOZ [Concomitant]
     Indication: HYPERTENSION
     Dosage: 1 DF, UNK
     Route: 048

REACTIONS (1)
  - Tongue oedema [Recovered/Resolved]

NARRATIVE: CASE EVENT DATE: 20150401
